FAERS Safety Report 11498024 (Version 1)
Quarter: 2015Q3

REPORT INFORMATION
  Report Type: Spontaneous
  Country: US (occurrence: US)
  Receive Date: 20150911
  Receipt Date: 20150911
  Transmission Date: 20151125
  Serious: Yes (Hospitalization, Other)
  Sender: FDA-Public Use
  Company Number: US-TEVA-591726USA

PATIENT
  Age: 68 Year
  Sex: Female
  Weight: 65.83 kg

DRUGS (13)
  1. CLONAZEPAM. [Suspect]
     Active Substance: CLONAZEPAM
     Indication: PRODUCT USED FOR UNKNOWN INDICATION
     Dosage: DOSE AND FREQUENCY NOT PROVIDED
  2. DIAZEPAM. [Suspect]
     Active Substance: DIAZEPAM
     Indication: PANIC ATTACK
     Dosage: 10 MILLIGRAM DAILY;
     Route: 048
     Dates: start: 2012
  3. GABAPENTIN. [Suspect]
     Active Substance: GABAPENTIN
     Indication: NEUROPATHY PERIPHERAL
     Dosage: 2700 MILLIGRAM DAILY; 3 CAPSULES, 3 TIMES A DAY
     Route: 065
     Dates: start: 2011, end: 20150522
  4. GABAPENTIN. [Suspect]
     Active Substance: GABAPENTIN
     Indication: MYOPATHY
     Dosage: 900 MILLIGRAM DAILY;
     Route: 065
     Dates: start: 20150523, end: 201507
  5. QUETIAPINE [Concomitant]
     Active Substance: QUETIAPINE
     Indication: SLEEP DISORDER
     Dosage: 300 MILLIGRAM DAILY;
     Route: 048
     Dates: start: 2005
  6. GABAPENTIN. [Suspect]
     Active Substance: GABAPENTIN
     Indication: NEURALGIA
     Dosage: 300 MILLIGRAM DAILY;
     Route: 065
     Dates: start: 201507
  7. PANTOPRAZOLE [Concomitant]
     Active Substance: PANTOPRAZOLE SODIUM
     Indication: GASTRIC ULCER
     Dosage: 80 MILLIGRAM DAILY;
     Route: 048
     Dates: start: 20150523
  8. TYLENOL WITH CODEINE [Suspect]
     Active Substance: ACETAMINOPHEN\CODEINE PHOSPHATE
     Indication: SURGERY
  9. TYLENOL WITH CODEINE [Suspect]
     Active Substance: ACETAMINOPHEN\CODEINE PHOSPHATE
     Indication: PAIN
     Dosage: 60 MILLIGRAM DAILY;
     Route: 048
     Dates: start: 200806
  10. HYOSCYAMINE. [Concomitant]
     Active Substance: HYOSCYAMINE
     Indication: DYSURIA
     Dosage: 60 MILLIGRAM DAILY;
     Dates: start: 201306
  11. WARFARIN [Suspect]
     Active Substance: WARFARIN
     Indication: PRODUCT USED FOR UNKNOWN INDICATION
     Dosage: DOSE AND FREQUENCY NOT PROVIDED
  12. HYDROCODONE [Suspect]
     Active Substance: HYDROCODONE
     Indication: PRODUCT USED FOR UNKNOWN INDICATION
     Dosage: DOSE AND FREQUENCY NOT PROVIDED
  13. FLUOXETINE [Suspect]
     Active Substance: FLUOXETINE\FLUOXETINE HYDROCHLORIDE
     Indication: DEPRESSION
     Dosage: 60 MILLIGRAM DAILY;
     Route: 065
     Dates: start: 1995

REACTIONS (4)
  - Dizziness [Not Recovered/Not Resolved]
  - Hallucination [Unknown]
  - Gastric ulcer [Unknown]
  - Fall [Recovered/Resolved]

NARRATIVE: CASE EVENT DATE: 20150523
